FAERS Safety Report 7078727-5 (Version None)
Quarter: 2010Q4

REPORT INFORMATION
  Report Type: 
  Country: None (occurrence: None)
  Receive Date: 20101101
  Receipt Date: 20101101
  Transmission Date: 20110411
  Serious: Yes (Life-Threatening, Other)
  Sender: FDA-Public Use
  Company Number: None

PATIENT
  Age: 40 Year
  Sex: Male
  Weight: 65.318 kg

DRUGS (1)
  1. METRONIDAZOLE [Suspect]
     Dosage: 250 MG 4 TIMES A DAY

REACTIONS (3)
  - EYE SWELLING [None]
  - SWELLING FACE [None]
  - VISION BLURRED [None]
